FAERS Safety Report 22743194 (Version 3)
Quarter: 2023Q4

REPORT INFORMATION
  Report Type: Spontaneous
  Country: GB (occurrence: GB)
  Receive Date: 20230724
  Receipt Date: 20231017
  Transmission Date: 20240110
  Serious: Yes (Hospitalization, Disabling, Congenital Anomaly, Other)
  Sender: FDA-Public Use
  Company Number: GB-MHRA-MED-202307142229505720-YQCVH

PATIENT
  Sex: Male

DRUGS (1)
  1. TOPIRAMATE [Suspect]
     Active Substance: TOPIRAMATE
     Indication: Migraine
     Dosage: TRYING TO WITHDRAW FROM TOPIRAMATE BUT OTHER MEDICATIONS ARE INEFFECTIVE.
     Route: 064
     Dates: start: 20130415

REACTIONS (4)
  - Autism spectrum disorder [Not Recovered/Not Resolved]
  - Foetal exposure during pregnancy [Unknown]
  - Birth trauma [Unknown]
  - Sepsis [Unknown]

NARRATIVE: CASE EVENT DATE: 20201219
